FAERS Safety Report 6546126-8 (Version None)
Quarter: 2010Q1

REPORT INFORMATION
  Report Type: 
  Country: None (occurrence: None)
  Receive Date: 20100122
  Receipt Date: 20100112
  Transmission Date: 20100710
  Serious: Yes (Hospitalization)
  Sender: FDA-Public Use
  Company Number: DE-BIOGENIDEC-2010BI001265

PATIENT
  Age: 65 Year
  Sex: Female

DRUGS (1)
  1. AVONEX [Suspect]
     Indication: RELAPSING-REMITTING MULTIPLE SCLEROSIS
     Route: 030
     Dates: start: 20091016

REACTIONS (2)
  - MAMMOGRAM [None]
  - MULTIPLE SCLEROSIS RELAPSE [None]
